FAERS Safety Report 24926726 (Version 1)
Quarter: 2025Q1

REPORT INFORMATION
  Report Type: Spontaneous
  Country: CA (occurrence: CA)
  Receive Date: 20250205
  Receipt Date: 20250205
  Transmission Date: 20250409
  Serious: Yes (Other)
  Sender: GLAND PHARMA LTD
  Company Number: CA-GLANDPHARMA-CA-2025GLNLIT00135

PATIENT
  Age: 67 Year
  Sex: Female

DRUGS (7)
  1. DEFEROXAMINE MESYLATE [Suspect]
     Active Substance: DEFEROXAMINE MESYLATE
     Indication: Iron overload
     Route: 042
  2. DEFEROXAMINE MESYLATE [Suspect]
     Active Substance: DEFEROXAMINE MESYLATE
     Route: 042
  3. SODIUM CHLORIDE [Concomitant]
     Active Substance: SODIUM CHLORIDE
     Indication: Chelation therapy
     Route: 042
  4. SODIUM CHLORIDE [Concomitant]
     Active Substance: SODIUM CHLORIDE
     Route: 042
  5. DEFERIPRONE [Concomitant]
     Active Substance: DEFERIPRONE
     Indication: Chelation therapy
     Route: 042
  6. DEFERIPRONE [Concomitant]
     Active Substance: DEFERIPRONE
     Route: 048
     Dates: start: 201906
  7. DEFERIPRONE [Concomitant]
     Active Substance: DEFERIPRONE
     Route: 042

REACTIONS (6)
  - Aplastic anaemia [Unknown]
  - Opportunistic infection [Unknown]
  - Deafness [Unknown]
  - Thrombocytopenia [Unknown]
  - Transaminases increased [Recovered/Resolved]
  - Visual impairment [Unknown]
